FAERS Safety Report 12980575 (Version 1)
Quarter: 2016Q4

REPORT INFORMATION
  Report Type: Spontaneous
  Country: DE (occurrence: DE)
  Receive Date: 20161128
  Receipt Date: 20161128
  Transmission Date: 20170207
  Serious: Yes (Other)
  Sender: FDA-Public Use
  Company Number: DE-MYLANLABS-2016M1051318

PATIENT

DRUGS (2)
  1. AMITRIPTYLINE [Suspect]
     Active Substance: AMITRIPTYLINE
     Dosage: 10 MG, UNK
     Route: 048
  2. AMITRIPTYLINE [Suspect]
     Active Substance: AMITRIPTYLINE
     Indication: TENSION HEADACHE
     Dosage: 10 MG, UNK
     Route: 048
     Dates: start: 20161107

REACTIONS (5)
  - Hyperhidrosis [Unknown]
  - Binge eating [Unknown]
  - Hyperthyroidism [Unknown]
  - Palpitations [Unknown]
  - Initial insomnia [Unknown]

NARRATIVE: CASE EVENT DATE: 2016
